FAERS Safety Report 12976099 (Version 1)
Quarter: 2016Q4

REPORT INFORMATION
  Report Type: Spontaneous
  Country: US (occurrence: US)
  Receive Date: 20161126
  Receipt Date: 20161126
  Transmission Date: 20170207
  Serious: No
  Sender: FDA-Public Use
  Company Number: US-009507513-1611USA004797

PATIENT
  Sex: Female

DRUGS (2)
  1. INTRON A [Suspect]
     Active Substance: INTERFERON ALFA-2B
     Indication: MALIGNANT MELANOMA
     Dosage: 20 MILLION IU 3 TIMES A WEEK
     Route: 058
     Dates: start: 20160613, end: 20161108
  2. INTRON A [Suspect]
     Active Substance: INTERFERON ALFA-2B
     Dosage: 18 MILLION IU 3 TIMES A WEEK
     Route: 058
     Dates: start: 20161109

REACTIONS (1)
  - Weight decreased [Unknown]

NARRATIVE: CASE EVENT DATE: 2016
